FAERS Safety Report 6228072-2 (Version None)
Quarter: 2009Q2

REPORT INFORMATION
  Report Type: 
  Country: None (occurrence: None)
  Receive Date: 20090610
  Receipt Date: 20090610
  Transmission Date: 20091009
  Serious: Yes (Life-Threatening, Hospitalization, Other)
  Sender: FDA-Public Use
  Company Number: None

PATIENT
  Age: 57 Year
  Sex: Female
  Weight: 99.7913 kg

DRUGS (2)
  1. ALTACE [Suspect]
     Indication: CARDIOVASCULAR EVENT PROPHYLAXIS
     Dosage: 10 MG ONCE PER DAY PO
     Route: 048
     Dates: start: 19990502, end: 20080108
  2. ALTACE [Suspect]
     Indication: HYPERTENSION
     Dosage: 10 MG ONCE PER DAY PO
     Route: 048
     Dates: start: 19990502, end: 20080108

REACTIONS (5)
  - ANAPHYLACTIC REACTION [None]
  - FALL [None]
  - LOSS OF CONSCIOUSNESS [None]
  - NO REACTION ON PREVIOUS EXPOSURE TO DRUG [None]
  - SPLENIC RUPTURE [None]
